FAERS Safety Report 14228059 (Version 2)
Quarter: 2017Q4

REPORT INFORMATION
  Report Type: Spontaneous
  Country: US (occurrence: US)
  Receive Date: 20171127
  Receipt Date: 20171211
  Transmission Date: 20180321
  Serious: Yes (Other)
  Sender: FDA-Public Use
  Company Number: US-OTSUKA-2017_025404

PATIENT
  Sex: Male

DRUGS (5)
  1. ABILIFY [Suspect]
     Active Substance: ARIPIPRAZOLE
     Indication: MAJOR DEPRESSION
     Dosage: DAILY DOSAGE: 2 TO 20MG
     Route: 065
  2. ABILIFY [Suspect]
     Active Substance: ARIPIPRAZOLE
     Indication: BIPOLAR DISORDER
     Dosage: DAILY DOSAGE: 2 TO 20MG
     Route: 065
     Dates: start: 20130119, end: 201607
  3. ABILIFY [Suspect]
     Active Substance: ARIPIPRAZOLE
     Indication: SOCIAL ANXIETY DISORDER
     Dosage: DAILY DOSAGE: 2 TO 20MG
     Route: 065
  4. ABILIFY [Suspect]
     Active Substance: ARIPIPRAZOLE
     Indication: PSYCHOTIC DISORDER
     Dosage: DAILY DOSAGE: 2 TO 20MG
     Route: 065
  5. ABILIFY [Suspect]
     Active Substance: ARIPIPRAZOLE
     Indication: ANXIETY
     Dosage: DAILY DOSAGE: 2 TO 20MG
     Route: 065

REACTIONS (11)
  - Suicidal ideation [Unknown]
  - Gambling [Unknown]
  - Pain [Unknown]
  - Illness anxiety disorder [Unknown]
  - Eating disorder [Unknown]
  - Compulsive sexual behaviour [Unknown]
  - Compulsive shopping [Unknown]
  - Gambling disorder [Unknown]
  - Suicide attempt [Unknown]
  - Injury [Unknown]
  - Anxiety [Unknown]
